FAERS Safety Report 11519965 (Version 1)
Quarter: 2015Q3

REPORT INFORMATION
  Report Type: Spontaneous
  Country: US (occurrence: US)
  Receive Date: 20150918
  Receipt Date: 20150918
  Transmission Date: 20151125
  Serious: No
  Sender: FDA-Public Use
  Company Number: US-RB-068110-14

PATIENT

DRUGS (3)
  1. BENADRYL PRN [Concomitant]
     Indication: PRODUCT USED FOR UNKNOWN INDICATION
     Dosage: DOSE UNK, UNITS UNK, FREQUENCY UNK
  2. MVI [Concomitant]
     Active Substance: VITAMINS
     Indication: PRODUCT USED FOR UNKNOWN INDICATION
     Dosage: DOSE UNK, UNITS UNK, FREQUENCY UNK
  3. MUCINEX MAXIMUM STRENGTH [Suspect]
     Active Substance: GUAIFENESIN
     Indication: PRODUCT USED FOR UNKNOWN INDICATION
     Dosage: 2400MG. TOOK 2 TABLETS ORALLY (A DOUBLE DOSE),FREQUENCY UNK
     Route: 048
     Dates: start: 20140818

REACTIONS (2)
  - No adverse event [Recovered/Resolved]
  - Overdose [Recovered/Resolved]

NARRATIVE: CASE EVENT DATE: 20140818
